FAERS Safety Report 19784176 (Version 1)
Quarter: 2021Q3

REPORT INFORMATION
  Report Type: Other
  Country: IT (occurrence: IT)
  Receive Date: 20210903
  Receipt Date: 20210903
  Transmission Date: 20211014
  Serious: Yes (Congenital Anomaly)
  Sender: FDA-Public Use
  Company Number: IT-ORCHID HEALTHCARE-2117980

PATIENT
  Sex: Male

DRUGS (2)
  1. DIVALPROEX SODIUM. [Suspect]
     Active Substance: DIVALPROEX SODIUM
     Indication: SCHIZOPHRENIA
     Route: 065
  2. OLANZAPINE. [Concomitant]
     Active Substance: OLANZAPINE
     Route: 065

REACTIONS (10)
  - Stereotypy [Unknown]
  - Teratogenicity [Not Recovered/Not Resolved]
  - Seizure [Recovering/Resolving]
  - Macrocephaly [Unknown]
  - Autism spectrum disorder [Unknown]
  - Epileptic encephalopathy [Unknown]
  - Dysmorphism [Unknown]
  - Autonomic nervous system imbalance [Unknown]
  - Hypotonia [Unknown]
  - Foetal exposure during pregnancy [Not Recovered/Not Resolved]
